FAERS Safety Report 6343647-8 (Version None)
Quarter: 2009Q3

REPORT INFORMATION
  Report Type: 
  Country: None (occurrence: None)
  Receive Date: 20090903
  Receipt Date: 20090825
  Transmission Date: 20100115
  Serious: Yes (Other)
  Sender: FDA-Public Use
  Company Number: ALA_00349_2009

PATIENT
  Sex: Male

DRUGS (7)
  1. TRILYTE [Suspect]
     Indication: COLONOSCOPY
     Dosage: AMOUNT FROM 4 LITER CONTAINER ORAL
     Route: 048
     Dates: start: 20090816, end: 20090816
  2. AZULFIDINE [Concomitant]
  3. ZOCOR [Concomitant]
  4. PREDNISONE [Concomitant]
  5. ASPIRIN [Concomitant]
  6. CALCIUM [Concomitant]
  7. GLUCOSAMINE [Concomitant]

REACTIONS (1)
  - PANCREATITIS [None]
